FAERS Safety Report 10696849 (Version 2)
Quarter: 2015Q1

REPORT INFORMATION
  Report Type: Spontaneous
  Country: US (occurrence: US)
  Receive Date: 20150108
  Receipt Date: 20150120
  Transmission Date: 20150721
  Serious: No
  Sender: FDA-Public Use
  Company Number: US-009507513-1501USA001159

PATIENT
  Age: 18 Year
  Sex: Female
  Weight: 59.41 kg

DRUGS (1)
  1. NEXPLANON [Suspect]
     Active Substance: ETONOGESTREL
     Indication: CONTRACEPTION
     Dosage: FREQUENCY: 3 YEARS, INSERTED IN LEFT ARM
     Route: 059
     Dates: start: 20140404

REACTIONS (3)
  - Device kink [Not Recovered/Not Resolved]
  - Implant site pain [Unknown]
  - Implant site pruritus [Unknown]

NARRATIVE: CASE EVENT DATE: 201408
